FAERS Safety Report 8133260-4 (Version None)
Quarter: 2012Q1

REPORT INFORMATION
  Report Type: 
  Country: None (occurrence: None)
  Receive Date: 20120213
  Receipt Date: 20120202
  Transmission Date: 20120608
  Serious: Yes (Other)
  Sender: FDA-Public Use
  Company Number: US-BAYER-2012-011122

PATIENT
  Age: 55 Year
  Sex: Female

DRUGS (2)
  1. AMPYRA [Concomitant]
     Dosage: 10 MG, UNK
  2. BETASERON [Suspect]
     Indication: MULTIPLE SCLEROSIS
     Dosage: 0.25 MG, QOD
     Route: 058
     Dates: start: 20090401

REACTIONS (3)
  - UNEVALUABLE EVENT [None]
  - CHEST PAIN [None]
  - FALL [None]
